FAERS Safety Report 18255646 (Version 2)
Quarter: 2020Q3

REPORT INFORMATION
  Report Type: Spontaneous
  Country: RU (occurrence: RU)
  Receive Date: 20200910
  Receipt Date: 20200915
  Transmission Date: 20201103
  Serious: Yes (Death, Hospitalization, Other)
  Sender: FDA-Public Use
  Company Number: RU-ABBVIE-20K-251-3560135-00

PATIENT
  Age: 88 Year
  Sex: Male
  Weight: 74 kg

DRUGS (10)
  1. KALETRA [Suspect]
     Active Substance: LOPINAVIR\RITONAVIR
     Indication: COVID-19 PNEUMONIA
     Route: 048
  2. ARTLEGIA [Suspect]
     Active Substance: OLOKIZUMAB
     Indication: RESPIRATORY FAILURE
  3. ACC [Concomitant]
     Active Substance: ACETYLCYSTEINE
     Indication: COVID-19 PNEUMONIA
  4. LINEZOLID. [Concomitant]
     Active Substance: LINEZOLID
     Indication: COVID-19 PNEUMONIA
  5. LASOLVAN [Concomitant]
     Active Substance: AMBROXOL HYDROCHLORIDE
     Indication: COVID-19 PNEUMONIA
  6. ARTLEGIA [Suspect]
     Active Substance: OLOKIZUMAB
     Indication: COVID-19 PNEUMONIA
     Dosage: 1 SINGLE DOSE?0.4 ML
     Route: 058
     Dates: start: 20200622, end: 20200622
  7. FUROSEMIDE. [Concomitant]
     Active Substance: FUROSEMIDE
     Indication: COVID-19 PNEUMONIA
  8. CLEXANE [Concomitant]
     Active Substance: ENOXAPARIN SODIUM
     Indication: COVID-19 PNEUMONIA
  9. DEXAMETHASONE. [Concomitant]
     Active Substance: DEXAMETHASONE
     Indication: PRODUCT USED FOR UNKNOWN INDICATION
  10. MERONEM [Concomitant]
     Active Substance: MEROPENEM
     Indication: COVID-19 PNEUMONIA

REACTIONS (3)
  - Concomitant disease aggravated [Fatal]
  - Acute respiratory failure [Not Recovered/Not Resolved]
  - Pulmonary oedema [Not Recovered/Not Resolved]

NARRATIVE: CASE EVENT DATE: 20200622
